FAERS Safety Report 24566083 (Version 1)
Quarter: 2024Q4

REPORT INFORMATION
  Report Type: Spontaneous
  Country: FI (occurrence: FI)
  Receive Date: 20241030
  Receipt Date: 20241030
  Transmission Date: 20250115
  Serious: Yes (Other)
  Sender: BRISTOL-MYERS SQUIBB COMPANY
  Company Number: FI-SANDOZ-SDZ2024FI088924

PATIENT
  Age: 84 Year

DRUGS (2)
  1. ELIQUIS [Suspect]
     Active Substance: APIXABAN
     Indication: Atrial fibrillation
     Dosage: UNK, ABOUT 3 YEARS
  2. APIXABAN [Suspect]
     Active Substance: APIXABAN
     Indication: Product used for unknown indication
     Dosage: UNK, 7 TABLETS
     Dates: start: 202410

REACTIONS (8)
  - Arrhythmia [Recovered/Resolved]
  - Dyspnoea [Unknown]
  - Asthma [Unknown]
  - Obstructive airways disorder [Unknown]
  - Poor quality sleep [Unknown]
  - Blood pressure increased [Unknown]
  - Heart rate increased [Unknown]
  - Hypersensitivity [Unknown]

NARRATIVE: CASE EVENT DATE: 20241001
